FAERS Safety Report 5014736-5 (Version None)
Quarter: 2006Q2

REPORT INFORMATION
  Report Type: 
  Country: None (occurrence: None)
  Receive Date: 20060531
  Receipt Date: 20060524
  Transmission Date: 20061013
  Serious: Yes (Hospitalization, Other)
  Sender: FDA-Public Use
  Company Number: GB-GLAXOSMITHKLINE-B0425017A

PATIENT
  Age: 78 Year
  Sex: Male

DRUGS (2)
  1. ROSIGLITAZONE [Suspect]
     Dosage: 4MG PER DAY
     Route: 048
     Dates: start: 20060217, end: 20060510
  2. DIGOXIN [Suspect]
     Dosage: 125MCG PER DAY
     Route: 048
     Dates: start: 20060901, end: 20060510

REACTIONS (2)
  - BRADYCARDIA [None]
  - DIARRHOEA [None]
